FAERS Safety Report 8771611 (Version 2)
Quarter: 2012Q4

REPORT INFORMATION
  Report Type: 
  Country: US (occurrence: US)
  Receive Date: 20120905
  Receipt Date: 20120924
  Transmission Date: 20130627
  Serious: Yes (Other)
  Sender: FDA-Public Use
  Company Number: US-ROCHE-1113498

PATIENT
  Sex: Male
  Weight: 88.08 kg

DRUGS (3)
  1. PEG-INTERFERON ALFA 2A [Suspect]
     Indication: HEPATITIS C
     Route: 058
     Dates: start: 20120625
  2. RIBAVIRIN [Suspect]
     Indication: HEPATITIS C
     Dosage: Dose reduced
     Route: 048
     Dates: start: 20120625
  3. INCIVEK [Suspect]
     Indication: HEPATITIS C
     Route: 048
     Dates: start: 20120625

REACTIONS (2)
  - Anaemia [Recovered/Resolved]
  - Transfusion [Unknown]
